FAERS Safety Report 10529767 (Version 1)
Quarter: 2014Q4

REPORT INFORMATION
  Report Type: Spontaneous
  Country: US (occurrence: None)
  Receive Date: 20141017
  Receipt Date: 20141017
  Transmission Date: 20150528
  Serious: Yes (Hospitalization, Other)
  Sender: FDA-Public Use
  Company Number: LH201400318

PATIENT
  Age: 20 Year
  Sex: Female

DRUGS (2)
  1. MAKENA [Suspect]
     Active Substance: HYDROXYPROGESTERONE CAPROATE
     Indication: PREMATURE DELIVERY
     Dates: start: 20140724, end: 20140918
  2. PRENATAL VITAMINS /01549301/ (ASCORBIC ACID, BIOTIN, MINERALS NOS, NICOTINIC ACID, RETINOL, TOCOPHEROL, VITAMIN B NOS, VITAMIN D NOS) [Concomitant]

REACTIONS (5)
  - Premature separation of placenta [None]
  - Premature labour [None]
  - Exposure during pregnancy [None]
  - Caesarean section [None]
  - Premature delivery [None]

NARRATIVE: CASE EVENT DATE: 20140925
